FAERS Safety Report 6166537-2 (Version None)
Quarter: 2009Q2

REPORT INFORMATION
  Report Type: 
  Country: None (occurrence: None)
  Receive Date: 20090424
  Receipt Date: 20090414
  Transmission Date: 20091009
  Serious: Yes (Other)
  Sender: FDA-Public Use
  Company Number: US-ELI_LILLY_AND_COMPANY-US200904002907

PATIENT
  Sex: Female

DRUGS (6)
  1. FORTEO [Suspect]
     Dosage: UNK, UNK
     Dates: start: 20070501
  2. CYMBALTA [Concomitant]
     Dosage: 50 MG, UNK
     Dates: start: 20080101
  3. FIORICET [Concomitant]
  4. PRILOSEC [Concomitant]
     Dosage: UNK, EACH MORNING
  5. TENORMIN [Concomitant]
     Indication: BLOOD PRESSURE
  6. PREDNISONE [Concomitant]
     Dosage: 0.075 MG, DAILY (1/D)

REACTIONS (6)
  - ARTHRALGIA [None]
  - FALL [None]
  - FEMUR FRACTURE [None]
  - FIBROMYALGIA [None]
  - MUSCLE TIGHTNESS [None]
  - MYALGIA [None]
